FAERS Safety Report 25944267 (Version 1)
Quarter: 2025Q4

REPORT INFORMATION
  Report Type: Spontaneous
  Country: CN (occurrence: CN)
  Receive Date: 20251021
  Receipt Date: 20251021
  Transmission Date: 20260118
  Serious: Yes (Other)
  Sender: ALEXION PHARMACEUTICALS
  Company Number: CN-ASTRAZENECA-202510CHN014954CN

PATIENT
  Age: 81 Year
  Sex: Male
  Weight: 62.5 kg

DRUGS (3)
  1. DAPAGLIFLOZIN [Suspect]
     Active Substance: DAPAGLIFLOZIN
     Indication: Blood glucose decreased
     Dosage: 10 MILLIGRAM, QD
     Dates: start: 20250831, end: 20250908
  2. ACARBOSE [Suspect]
     Active Substance: ACARBOSE
     Indication: Blood glucose decreased
     Dosage: 50 MILLIGRAM, TID
     Dates: start: 20250831, end: 20250909
  3. PIPERACILLIN SODIUM [Concomitant]
     Active Substance: PIPERACILLIN SODIUM
     Indication: Lung neoplasm malignant
     Dosage: 4.5 MILLIGRAM, TID
     Dates: start: 20250901, end: 20250905

REACTIONS (1)
  - Renal impairment [Recovering/Resolving]

NARRATIVE: CASE EVENT DATE: 20250908
